FAERS Safety Report 18017367 (Version 3)
Quarter: 2021Q1

REPORT INFORMATION
  Report Type: Other
  Country: PK (occurrence: PK)
  Receive Date: 20200713
  Receipt Date: 20210210
  Transmission Date: 20210419
  Serious: Yes (Death, Other)
  Sender: FDA-Public Use
  Company Number: PK-ROCHE-2636435

PATIENT

DRUGS (3)
  1. TOCILIZUMAB. [Suspect]
     Active Substance: TOCILIZUMAB
     Indication: ACUTE RESPIRATORY DISTRESS SYNDROME
  2. METHYLPREDNISOLONE. [Concomitant]
     Active Substance: METHYLPREDNISOLONE
     Route: 042
  3. TOCILIZUMAB. [Suspect]
     Active Substance: TOCILIZUMAB
     Indication: COVID-19 PNEUMONIA
     Dosage: 600MG (RANGE: 320 ? 680 MG)
     Route: 042

REACTIONS (7)
  - Acinetobacter infection [Unknown]
  - Intentional product use issue [Fatal]
  - Aspergillus infection [Unknown]
  - Staphylococcal infection [Unknown]
  - Nosocomial infection [Fatal]
  - Pseudomonas infection [Unknown]
  - Off label use [Fatal]
